FAERS Safety Report 9781113 (Version 1)
Quarter: 2013Q4

REPORT INFORMATION
  Report Type: Report from Study
  Country: US (occurrence: US)
  Receive Date: 20131224
  Receipt Date: 20131224
  Transmission Date: 20140711
  Serious: Yes (Hospitalization, Other)
  Sender: FDA-Public Use
  Company Number: US-ASTELLAS-2013US013223

PATIENT
  Age: 71 Year
  Sex: Male

DRUGS (1)
  1. ERLOTINIB TABLET [Suspect]
     Indication: LUNG NEOPLASM MALIGNANT
     Dosage: 150 MG, UID/QD
     Route: 048
     Dates: start: 20131127, end: 20131210

REACTIONS (5)
  - Pericardial effusion [Recovering/Resolving]
  - Local swelling [Recovering/Resolving]
  - Dyspnoea [Recovering/Resolving]
  - Rash [Recovering/Resolving]
  - Diarrhoea [Recovering/Resolving]
